FAERS Safety Report 13825092 (Version 1)
Quarter: 2017Q3

REPORT INFORMATION
  Report Type: Spontaneous
  Country: DE (occurrence: DE)
  Receive Date: 20170802
  Receipt Date: 20170802
  Transmission Date: 20171127
  Serious: Yes (Other)
  Sender: FDA-Public Use
  Company Number: PHHY2017DE109292

PATIENT
  Sex: Female

DRUGS (3)
  1. ESTRADOT [Suspect]
     Active Substance: ESTRADIOL
     Indication: PRODUCT USED FOR UNKNOWN INDICATION
     Dosage: 1 DF, UNK
     Route: 065
     Dates: start: 20170529
  2. ESTRADOT [Suspect]
     Active Substance: ESTRADIOL
     Dosage: 2 DF, UNK
     Route: 065
     Dates: start: 201707
  3. GESTAGENO [Concomitant]
     Indication: PRODUCT USED FOR UNKNOWN INDICATION
     Dosage: (CONTINUOUSLY)
     Route: 067

REACTIONS (11)
  - Myalgia [Unknown]
  - Hyperhidrosis [Unknown]
  - Fluctuance [Unknown]
  - Drug ineffective [Unknown]
  - Underdose [Unknown]
  - Haemorrhage [Unknown]
  - Tachycardia [Unknown]
  - Arthralgia [Unknown]
  - Hot flush [Unknown]
  - Incorrect dose administered [Unknown]
  - Restlessness [Unknown]
